FAERS Safety Report 13579169 (Version 2)
Quarter: 2017Q2

REPORT INFORMATION
  Report Type: Report from Study
  Country: None (occurrence: BE)
  Receive Date: 20170524
  Receipt Date: 20170529
  Transmission Date: 20170830
  Serious: No
  Sender: FDA-Public Use
  Company Number: BE-ABBVIE-17P-013-1873022-00

PATIENT
  Age: 79 Year
  Sex: Male

DRUGS (16)
  1. DUODOPA [Suspect]
     Active Substance: CARBIDOPA\LEVODOPA
     Indication: PARKINSON^S DISEASE
     Dosage: AM=8.5ML, CD=2.9ML/HR DURING 16HRS, ED=2ML
     Route: 050
     Dates: start: 20170130, end: 20170209
  2. DUODOPA [Suspect]
     Active Substance: CARBIDOPA\LEVODOPA
     Dosage: AM=8ML, CD=2.7ML/HR DURING 16HRS, ED=2.3ML
     Route: 050
     Dates: start: 20170228, end: 20170414
  3. DUODOPA [Suspect]
     Active Substance: CARBIDOPA\LEVODOPA
     Dosage: AM=8ML?CD=2.7ML/HR DURING 16HRS?ED=2.5ML
     Route: 050
     Dates: start: 20170414, end: 20170515
  4. ALPRAZOLAM (XANAX RETARD) [Concomitant]
     Indication: PRODUCT USED FOR UNKNOWN INDICATION
  5. CLONAZEPAM (RIVOTRIL) [Concomitant]
     Indication: PRODUCT USED FOR UNKNOWN INDICATION
  6. ATORVASTATINE (LIPITOR) [Concomitant]
     Indication: PRODUCT USED FOR UNKNOWN INDICATION
  7. LEVODOPA/BENSERAZIDE (PROLOPA 250) [Concomitant]
     Indication: PRODUCT USED FOR UNKNOWN INDICATION
     Dosage: FS: 200MG/50MG; UD: 1.25 TAB DAILY + 1.125 TAB 2XDAY + 1TAB 3XDAY
  8. FESOTERODIN FUMARATE (TOVIAZ) [Concomitant]
     Indication: PRODUCT USED FOR UNKNOWN INDICATION
  9. TAMSULOSINE [Concomitant]
     Active Substance: TAMSULOSIN HYDROCHLORIDE
     Indication: PRODUCT USED FOR UNKNOWN INDICATION
  10. DUODOPA [Suspect]
     Active Substance: CARBIDOPA\LEVODOPA
     Dosage: AM=8ML?CD=2.7ML/HR DURING 16HRS?ED=3ML
     Route: 050
     Dates: start: 20170515
  11. TRIPTORELINE (SALVACYL) [Concomitant]
     Indication: PRODUCT USED FOR UNKNOWN INDICATION
  12. ALENDRONATE [Concomitant]
     Active Substance: ALENDRONATE SODIUM
     Indication: PRODUCT USED FOR UNKNOWN INDICATION
  13. ACETYLSALICYLIC ACID (ASAFLOW) [Concomitant]
     Indication: PRODUCT USED FOR UNKNOWN INDICATION
  14. DUODOPA [Suspect]
     Active Substance: CARBIDOPA\LEVODOPA
     Dosage: AM=8ML, CD=2.7ML/HR DURING 16HRS, ED=2ML
     Route: 050
     Dates: start: 20170209, end: 20170228
  15. ESCITALOPRAM (SIPRALEXA) [Concomitant]
     Indication: PRODUCT USED FOR UNKNOWN INDICATION
  16. SEROQUEL [Concomitant]
     Active Substance: QUETIAPINE FUMARATE
     Indication: PRODUCT USED FOR UNKNOWN INDICATION

REACTIONS (22)
  - Dyskinesia [Not Recovered/Not Resolved]
  - Hypertension [Unknown]
  - Depression [Unknown]
  - Stoma site hypergranulation [Recovering/Resolving]
  - Psychiatric symptom [Unknown]
  - Condition aggravated [Unknown]
  - Fall [Recovered/Resolved]
  - Stress [Not Recovered/Not Resolved]
  - Stress [Unknown]
  - Hypotension [Recovered/Resolved]
  - Flatulence [Unknown]
  - Drug ineffective [Unknown]
  - Speech disorder [Not Recovered/Not Resolved]
  - Social stay hospitalisation [Unknown]
  - Fatigue [Unknown]
  - Freezing phenomenon [Not Recovered/Not Resolved]
  - Stoma site erythema [Unknown]
  - Speech disorder [Unknown]
  - Marital problem [Unknown]
  - Malaise [Unknown]
  - Nausea [Unknown]
  - On and off phenomenon [Unknown]

NARRATIVE: CASE EVENT DATE: 20170206
